FAERS Safety Report 11760846 (Version 1)
Quarter: 2015Q4

REPORT INFORMATION
  Report Type: Spontaneous
  Country: IT (occurrence: IT)
  Receive Date: 20151120
  Receipt Date: 20151120
  Transmission Date: 20160304
  Serious: Yes (Other)
  Sender: FDA-Public Use
  Company Number: IT-PFIZER INC-2015395633

PATIENT
  Age: 18 Year
  Sex: Female

DRUGS (2)
  1. SERTRALINE HCL [Suspect]
     Active Substance: SERTRALINE HYDROCHLORIDE
     Dosage: 10 DF, TOTAL
  2. SERTRALINE HCL [Suspect]
     Active Substance: SERTRALINE HYDROCHLORIDE
     Indication: DEPRESSION
     Dosage: UNK

REACTIONS (8)
  - Pain in extremity [Unknown]
  - Pyrexia [Unknown]
  - Toxicity to various agents [Unknown]
  - Overdose [Unknown]
  - Erythema [Unknown]
  - Cellulitis [Unknown]
  - Peripheral swelling [Unknown]
  - Feeling hot [Unknown]
